FAERS Safety Report 13277431 (Version 1)
Quarter: 2017Q1

REPORT INFORMATION
  Report Type: Spontaneous
  Country: GB (occurrence: GB)
  Receive Date: 20170228
  Receipt Date: 20170228
  Transmission Date: 20170428
  Serious: Yes (Disabling)
  Sender: FDA-Public Use
  Company Number: GB-TEVA-743846ACC

PATIENT
  Age: 46 Year
  Sex: Female
  Weight: 139.7 kg

DRUGS (4)
  1. VENLAFAXINE [Suspect]
     Active Substance: VENLAFAXINE HYDROCHLORIDE
     Indication: DEPRESSION
     Route: 048
     Dates: start: 20161110, end: 20161220
  2. SUMATRIPTAN. [Concomitant]
     Active Substance: SUMATRIPTAN
     Indication: CLUSTER HEADACHE
  3. OMEPRAZOLE. [Concomitant]
     Active Substance: OMEPRAZOLE
  4. VERAPAMIL [Concomitant]
     Active Substance: VERAPAMIL HYDROCHLORIDE
     Indication: CLUSTER HEADACHE

REACTIONS (5)
  - Nausea [Recovered/Resolved]
  - Sleep terror [Recovered/Resolved]
  - Vomiting [Recovered/Resolved]
  - Withdrawal syndrome [Unknown]
  - Cluster headache [Unknown]

NARRATIVE: CASE EVENT DATE: 20161110
